FAERS Safety Report 6185956-1 (Version None)
Quarter: 2009Q2

REPORT INFORMATION
  Report Type: 
  Country: None (occurrence: None)
  Receive Date: 20090511
  Receipt Date: 20090430
  Transmission Date: 20091009
  Serious: Yes (Other)
  Sender: FDA-Public Use
  Company Number: GB-ELI_LILLY_AND_COMPANY-GB200905000060

PATIENT
  Sex: Female
  Weight: 140 kg

DRUGS (2)
  1. BYETTA [Suspect]
     Dosage: 5 UG, UNK
     Dates: start: 20090426
  2. IMPLANON [Concomitant]
     Route: 050

REACTIONS (1)
  - VAGINAL HAEMORRHAGE [None]
